FAERS Safety Report 5546626-3 (Version None)
Quarter: 2007Q4

REPORT INFORMATION
  Report Type: 
  Country: None (occurrence: None)
  Receive Date: 20071123
  Receipt Date: 20061206
  Transmission Date: 20080405
  Serious: Yes (Hospitalization)
  Sender: FDA-Public Use
  Company Number: US-JNJFOC-20061201644

PATIENT
  Age: 67 Year
  Sex: Female
  Weight: 59.8748 kg

DRUGS (5)
  1. LEVAQUIN [Suspect]
     Indication: BRONCHIECTASIS
     Dosage: 500 MG, 1 IN 1 DAY, ORAL; 500 MG, 1 IN 1 DAY, ORAL
     Route: 048
     Dates: start: 20061029, end: 20061105
  2. LEVAQUIN [Suspect]
     Indication: BRONCHIECTASIS
     Dosage: 500 MG, 1 IN 1 DAY, ORAL; 500 MG, 1 IN 1 DAY, ORAL
     Route: 048
     Dates: start: 20061113, end: 20061204
  3. CIPROFLOXACIN [Suspect]
     Indication: BRONCHIECTASIS
     Dosage: 500 MG, 1 IN 1 DAY, ORAL
     Route: 048
     Dates: start: 20061029, end: 20061105
  4. IMMUNOSUPPRESSANTS (IMMUNOSUPPRESSIVE AGENTS) UNSPECIFIED [Concomitant]
  5. TOBROMYCIN (TOBRAMYCIN) INHALATION [Concomitant]

REACTIONS (3)
  - ARTHRALGIA [None]
  - CROUP INFECTIOUS [None]
  - WEIGHT DECREASED [None]
